FAERS Safety Report 12658783 (Version 1)
Quarter: 2016Q3

REPORT INFORMATION
  Report Type: Spontaneous
  Country: US (occurrence: US)
  Receive Date: 20160817
  Receipt Date: 20160817
  Transmission Date: 20161109
  Serious: No
  Sender: FDA-Public Use
  Company Number: US-BEH-2016072323

PATIENT
  Age: 21 Year
  Sex: Female
  Weight: 32.2 kg

DRUGS (10)
  1. TYLENOL [Concomitant]
     Active Substance: ACETAMINOPHEN
  2. ALBUTEROL                          /00139501/ [Concomitant]
     Active Substance: ALBUTEROL
  3. DIPHENHYDRAMINE. [Concomitant]
     Active Substance: DIPHENHYDRAMINE
  4. EPIPEN [Concomitant]
     Active Substance: EPINEPHRINE
  5. HIZENTRA [Suspect]
     Active Substance: HUMAN IMMUNOGLOBULIN G
     Indication: IMMUNODEFICIENCY COMMON VARIABLE
     Dosage: 4 G, QW
     Route: 058
     Dates: start: 20101028
  6. TOPAMAX [Concomitant]
     Active Substance: TOPIRAMATE
  7. ZANTAC [Concomitant]
     Active Substance: RANITIDINE HYDROCHLORIDE
  8. CLARITHROMYCIN. [Concomitant]
     Active Substance: CLARITHROMYCIN
  9. DEPO-PROVERA [Concomitant]
     Active Substance: MEDROXYPROGESTERONE ACETATE
  10. CLORAZEPATE [Concomitant]
     Active Substance: CLORAZEPATE DIPOTASSIUM

REACTIONS (1)
  - Influenza [Unknown]

NARRATIVE: CASE EVENT DATE: 20160425
